FAERS Safety Report 7043986-1 (Version None)
Quarter: 2010Q4

REPORT INFORMATION
  Report Type: 
  Country: None (occurrence: None)
  Receive Date: 20101012
  Receipt Date: 20101012
  Transmission Date: 20110411
  Serious: Yes (Life-Threatening, Other)
  Sender: FDA-Public Use
  Company Number: None

PATIENT
  Age: 61 Year
  Sex: Female
  Weight: 124.7392 kg

DRUGS (3)
  1. CITALOPRAM HYDROBROMIDE [Suspect]
     Indication: DEPRESSION
     Dosage: 30 ONCE PO
     Route: 048
     Dates: start: 20070708, end: 20100621
  2. BENADRYL [Concomitant]
  3. ALEVE (CAPLET) [Concomitant]

REACTIONS (17)
  - ASTHENIA [None]
  - CHOLELITHIASIS [None]
  - DECREASED ACTIVITY [None]
  - DIZZINESS [None]
  - FATIGUE [None]
  - HAEMORRHAGE [None]
  - HEADACHE [None]
  - HEPATIC CIRRHOSIS [None]
  - INCREASED TENDENCY TO BRUISE [None]
  - POSTMENOPAUSAL HAEMORRHAGE [None]
  - RASH [None]
  - RED BLOOD CELL COUNT ABNORMAL [None]
  - SPLENOMEGALY [None]
  - THROMBOCYTOPENIA [None]
  - UTERINE DISORDER [None]
  - WEIGHT INCREASED [None]
  - WHITE BLOOD CELL COUNT DECREASED [None]
